FAERS Safety Report 23852154 (Version 2)
Quarter: 2024Q2

REPORT INFORMATION
  Report Type: Spontaneous
  Country: US (occurrence: US)
  Receive Date: 20240514
  Receipt Date: 20240516
  Transmission Date: 20240716
  Serious: No
  Sender: FDA-Public Use
  Company Number: US-002147023-NVSC2024US100289

PATIENT
  Sex: Female

DRUGS (1)
  1. SCEMBLIX [Suspect]
     Active Substance: ASCIMINIB HYDROCHLORIDE
     Indication: Product used for unknown indication
     Dosage: UNK
     Route: 065

REACTIONS (7)
  - Oral discomfort [Unknown]
  - Throat irritation [Unknown]
  - Abdominal discomfort [Unknown]
  - Muscle spasms [Unknown]
  - Flatulence [Unknown]
  - Diarrhoea [Unknown]
  - Cough [Unknown]
